FAERS Safety Report 21729103 (Version 1)
Quarter: 2022Q4

REPORT INFORMATION
  Report Type: Spontaneous
  Country: US (occurrence: US)
  Receive Date: 20221214
  Receipt Date: 20221214
  Transmission Date: 20230113
  Serious: No
  Sender: FDA-Public Use
  Company Number: US-PFIZER INC-PV202200122947

PATIENT
  Age: 63 Year
  Sex: Male

DRUGS (2)
  1. XELJANZ XR [Suspect]
     Active Substance: TOFACITINIB CITRATE
     Dosage: UNK
  2. LEFLUNOMIDE [Suspect]
     Active Substance: LEFLUNOMIDE
     Dosage: UNK
     Dates: start: 2022

REACTIONS (1)
  - Condition aggravated [Unknown]

NARRATIVE: CASE EVENT DATE: 20220101
